FAERS Safety Report 6789521-4 (Version None)
Quarter: 2010Q2

REPORT INFORMATION
  Report Type: 
  Country: None (occurrence: None)
  Receive Date: 20100624
  Receipt Date: 20100616
  Transmission Date: 20101027
  Serious: Yes (Hospitalization)
  Sender: FDA-Public Use
  Company Number: US-BIOGENIDEC-2010BI013366

PATIENT
  Age: 42 Year
  Sex: Female

DRUGS (6)
  1. AVONEX [Suspect]
     Indication: MULTIPLE SCLEROSIS
     Route: 030
     Dates: start: 19980101, end: 20040101
  2. AVONEX [Suspect]
     Route: 030
     Dates: start: 20091016
  3. IMMUNE GLOBULIN INTRAVENOUS (HUMAN) [Concomitant]
  4. METHOTREXATE [Concomitant]
  5. EFFEXOR [Concomitant]
  6. AMBIEN [Concomitant]

REACTIONS (1)
  - MENINGITIS VIRAL [None]
